FAERS Safety Report 14781148 (Version 2)
Quarter: 2018Q2

REPORT INFORMATION
  Report Type: Spontaneous
  Country: US (occurrence: US)
  Receive Date: 20180419
  Receipt Date: 20180427
  Transmission Date: 20180711
  Serious: Yes (Death, Hospitalization, Other)
  Sender: FDA-Public Use
  Company Number: US-VIFOR (INTERNATIONAL) INC.-VIT-2016-03549

PATIENT
  Age: 55 Year
  Sex: Female

DRUGS (17)
  1. VELTASSA [Suspect]
     Active Substance: PATIROMER
     Indication: HYPERKALAEMIA
     Route: 048
     Dates: start: 20160503, end: 201607
  2. TRESIBA [Concomitant]
     Active Substance: INSULIN DEGLUDEC
  3. TOVIAZ [Concomitant]
     Active Substance: FESOTERODINE FUMARATE
  4. LASIX [Concomitant]
     Active Substance: FUROSEMIDE
  5. ALLOPURINOL. [Concomitant]
     Active Substance: ALLOPURINOL
  6. CALCITRIOL. [Concomitant]
     Active Substance: CALCITRIOL
  7. MIRALAX [Concomitant]
     Active Substance: POLYETHYLENE GLYCOL 3350
  8. ZANTAC [Concomitant]
     Active Substance: RANITIDINE HYDROCHLORIDE
  9. NEURONTIN [Concomitant]
     Active Substance: GABAPENTIN
  10. VELTASSA [Suspect]
     Active Substance: PATIROMER
     Route: 048
     Dates: start: 2016
  11. NOVOLOG [Concomitant]
     Active Substance: INSULIN ASPART
  12. NORCO [Concomitant]
     Active Substance: ACETAMINOPHEN\HYDROCODONE BITARTRATE
  13. ACETYLSALICYLIC ACID [Concomitant]
     Active Substance: ASPIRIN
  14. HYDRALAZINE HYDROCHLORIDE. [Concomitant]
     Active Substance: HYDRALAZINE HYDROCHLORIDE
  15. BYSTOLIC [Concomitant]
     Active Substance: NEBIVOLOL HYDROCHLORIDE
  16. FERROUS SULFATE. [Concomitant]
     Active Substance: FERROUS SULFATE
  17. PRILOSEC [Concomitant]
     Active Substance: OMEPRAZOLE MAGNESIUM

REACTIONS (7)
  - Pain [Unknown]
  - Death [Fatal]
  - Diarrhoea [Unknown]
  - Intestinal polyp [Unknown]
  - Renal disorder [Unknown]
  - Colitis [Unknown]
  - Stomach mass [Unknown]

NARRATIVE: CASE EVENT DATE: 2016
